FAERS Safety Report 8251660-9 (Version None)
Quarter: 2012Q2

REPORT INFORMATION
  Report Type: 
  Country: None (occurrence: None)
  Receive Date: 20120402
  Receipt Date: 20120123
  Transmission Date: 20120825
  Serious: No
  Sender: FDA-Public Use
  Company Number: US-ABBOTT-12P-163-0896810-00

PATIENT
  Age: 60 Year
  Sex: Male
  Weight: 90.8 kg

DRUGS (2)
  1. ANDROGEL [Suspect]
     Indication: HYPOGONADISM
     Dosage: 2 PUMPS PER DAY
     Dates: start: 20110101
  2. ANDROGEL [Suspect]
     Indication: HYPOGONADISM
     Dosage: TWO PACKETS PER DAY
     Dates: end: 20100101

REACTIONS (1)
  - BLOOD TESTOSTERONE DECREASED [None]
